FAERS Safety Report 16876428 (Version 1)
Quarter: 2019Q4

REPORT INFORMATION
  Report Type: Spontaneous
  Country: US (occurrence: US)
  Receive Date: 20191002
  Receipt Date: 20191002
  Transmission Date: 20200122
  Serious: Yes (Life-Threatening, Hospitalization, Disabling)
  Sender: FDA-Public Use
  Company Number: None

PATIENT
  Age: 41 Year
  Sex: Female
  Weight: 101.25 kg

DRUGS (1)
  1. FLUOXETINE [Suspect]
     Active Substance: FLUOXETINE HYDROCHLORIDE
     Indication: PERINATAL DEPRESSION
     Route: 048
     Dates: start: 20160115, end: 20171101

REACTIONS (13)
  - Dizziness [None]
  - Cognitive disorder [None]
  - Anxiety [None]
  - Pyrexia [None]
  - Product prescribing issue [None]
  - Muscle twitching [None]
  - Diarrhoea [None]
  - Abdominal pain upper [None]
  - Chills [None]
  - Paraesthesia [None]
  - Brain injury [None]
  - Muscle spasms [None]
  - Drug interaction [None]

NARRATIVE: CASE EVENT DATE: 20171021
